FAERS Safety Report 15322356 (Version 2)
Quarter: 2018Q3

REPORT INFORMATION
  Report Type: Spontaneous
  Country: ES (occurrence: ES)
  Receive Date: 20180827
  Receipt Date: 20180905
  Transmission Date: 20181010
  Serious: Yes (Hospitalization, Congenital Anomaly, Other)
  Sender: FDA-Public Use
  Company Number: PHHY2018ES079114

PATIENT
  Age: 32 Week
  Sex: Male

DRUGS (5)
  1. FUROSEMIDE. [Suspect]
     Active Substance: FUROSEMIDE
     Indication: FOETAL EXPOSURE DURING PREGNANCY
     Route: 064
  2. CAPTOPRIL. [Suspect]
     Active Substance: CAPTOPRIL
     Indication: FOETAL EXPOSURE DURING PREGNANCY
     Route: 064
  3. NICARDIPINE [Suspect]
     Active Substance: NICARDIPINE
     Indication: FOETAL EXPOSURE DURING PREGNANCY
     Route: 064
  4. OLMESARTAN [Suspect]
     Active Substance: OLMESARTAN
     Indication: FOETAL EXPOSURE DURING PREGNANCY
     Dosage: UNK
     Route: 064
  5. AMLODIPINE [Suspect]
     Active Substance: AMLODIPINE BESYLATE
     Indication: FOETAL EXPOSURE DURING PREGNANCY
     Dosage: MATERNAL DOSE: LAST DOSE ADMINISTERED 24 HOURS PRIOR TO C?SECTION
     Route: 064

REACTIONS (16)
  - Proteinuria [Recovered/Resolved]
  - Kidney small [Unknown]
  - Areflexia [Recovered/Resolved]
  - Hypotonia [Recovered/Resolved]
  - Hypertension [Unknown]
  - Pneumothorax [Recovered/Resolved]
  - Anuria [Recovered/Resolved]
  - Potter^s syndrome [Recovering/Resolving]
  - Pulmonary hypoplasia [Recovered/Resolved]
  - Anaemia [Recovered/Resolved]
  - Oliguria [Recovering/Resolving]
  - Renal failure [Recovered/Resolved]
  - Congenital anomaly [Unknown]
  - Hypotension [Recovered/Resolved]
  - Foetal exposure during pregnancy [Recovering/Resolving]
  - Foetal growth restriction [Unknown]
